FAERS Safety Report 6181777-4 (Version None)
Quarter: 2009Q2

REPORT INFORMATION
  Report Type: 
  Country: None (occurrence: None)
  Receive Date: 20090504
  Receipt Date: 20090428
  Transmission Date: 20091009
  Serious: Yes (Death)
  Sender: FDA-Public Use
  Company Number: 005631

PATIENT
  Age: 34 Year
  Sex: Male

DRUGS (1)
  1. BUSULFEX [Suspect]
     Indication: STEM CELL TRANSPLANT

REACTIONS (1)
  - KLEBSIELLA SEPSIS [None]
